FAERS Safety Report 15077228 (Version 24)
Quarter: 2020Q3

REPORT INFORMATION
  Report Type: Report from Study
  Country: US (occurrence: US)
  Receive Date: 20180627
  Receipt Date: 20200821
  Transmission Date: 20201102
  Serious: Yes (Hospitalization)
  Sender: FDA-Public Use
  Company Number: US-ACTELION-A-US2018-174171

PATIENT
  Age: 44 Year
  Sex: Female
  Weight: 70.3 kg

DRUGS (62)
  1. SILDENAFIL. [Concomitant]
     Active Substance: SILDENAFIL
  2. ENOXAPARIN [Concomitant]
     Active Substance: ENOXAPARIN
     Dosage: UNK
     Dates: start: 20180711
  3. ALBUTEROL. [Concomitant]
     Active Substance: ALBUTEROL
  4. BISACODYL. [Concomitant]
     Active Substance: BISACODYL
     Dosage: UNK
     Dates: start: 20191115
  5. ZITHROMAX [Concomitant]
     Active Substance: AZITHROMYCIN DIHYDRATE
     Dosage: UNK
     Route: 042
     Dates: start: 20191115
  6. METOCLOPRAMIDE. [Concomitant]
     Active Substance: METOCLOPRAMIDE
     Dosage: UNK
     Route: 042
  7. NALOXONE [Concomitant]
     Active Substance: NALOXONE
     Dosage: UNK
     Dates: start: 20191115
  8. BUDESONIDE W/FORMOTEROL [Concomitant]
     Active Substance: BUDESONIDE\FORMOTEROL
     Dosage: UNK
     Dates: start: 20200131
  9. ONDANSETRON [Concomitant]
     Active Substance: ONDANSETRON
     Dosage: UNK
     Dates: start: 20200131
  10. TRIAMCINOLONE [Concomitant]
     Active Substance: TRIAMCINOLONE
  11. METOCLOPRAM [Concomitant]
     Active Substance: METOCLOPRAMIDE
  12. METOCLOPRAMIDE. [Concomitant]
     Active Substance: METOCLOPRAMIDE
     Dosage: UNK
     Dates: start: 20191115
  13. KETOROLAC [Concomitant]
     Active Substance: KETOROLAC TROMETHAMINE
     Dosage: UNK
     Dates: start: 20200104
  14. OPSUMIT [Suspect]
     Active Substance: MACITENTAN
     Dosage: 10 MG, QD
     Route: 048
     Dates: start: 20180424
  15. ADVAIR HFA [Concomitant]
     Active Substance: FLUTICASONE PROPIONATE\SALMETEROL XINAFOATE
     Dosage: UNK
     Dates: start: 20190314
  16. LOSARTAN. [Concomitant]
     Active Substance: LOSARTAN
  17. LACTULOSE. [Concomitant]
     Active Substance: LACTULOSE
  18. DIPHENHYDRAMINE. [Concomitant]
     Active Substance: DIPHENHYDRAMINE
  19. OSELTAMIVIR [Concomitant]
     Active Substance: OSELTAMIVIR
  20. ALBUTEROL SULFATE W/IPRATROPIUM BROMIDE [Concomitant]
     Active Substance: ALBUTEROL SULFATE\IPRATROPIUM BROMIDE
     Dosage: UNK
     Dates: start: 20190314
  21. TRIAMCINOLONE ACETONIDE. [Concomitant]
     Active Substance: TRIAMCINOLONE ACETONIDE
     Dosage: UNK
     Dates: start: 20190314
  22. ACETAMINOPHEN. [Concomitant]
     Active Substance: ACETAMINOPHEN
     Dosage: UNK
     Dates: start: 20191115
  23. OXYCODONE [Concomitant]
     Active Substance: OXYCODONE
     Dosage: 80 MG, TID
     Dates: start: 20180711, end: 20180717
  24. DILAUDID [Concomitant]
     Active Substance: HYDROMORPHONE HYDROCHLORIDE
     Dosage: UNK
     Route: 042
     Dates: start: 20190304
  25. IBUPROFEN. [Concomitant]
     Active Substance: IBUPROFEN
     Dosage: UNK
     Dates: start: 20190314
  26. FLUCONAZOLE. [Concomitant]
     Active Substance: FLUCONAZOLE
  27. HYDROCORTISONE. [Concomitant]
     Active Substance: HYDROCORTISONE
  28. FUROSEMIDE. [Concomitant]
     Active Substance: FUROSEMIDE
  29. AMOXICILLIN AND CLAVULA. POTASSIUM [Concomitant]
     Active Substance: AMOXICILLIN\CLAVULANATE POTASSIUM
  30. PHENERGAN [Concomitant]
     Active Substance: PROMETHAZINE HYDROCHLORIDE
  31. PROMETHAZINE [Concomitant]
     Active Substance: PROMETHAZINE HYDROCHLORIDE
     Dosage: UNK
     Dates: start: 20190314
  32. HEPARIN [Concomitant]
     Active Substance: HEPARIN SODIUM
     Dosage: UNK
     Route: 042
     Dates: start: 20200104
  33. LACTULOSE AIWA [Concomitant]
     Dosage: UNK
     Dates: start: 20200131
  34. COUMADIN [Concomitant]
     Active Substance: WARFARIN SODIUM
  35. TYLENOL [Concomitant]
     Active Substance: ACETAMINOPHEN
     Dosage: UNK
     Dates: start: 20180711
  36. FOLIC ACID. [Concomitant]
     Active Substance: FOLIC ACID
  37. HYDROXYUREA. [Concomitant]
     Active Substance: HYDROXYUREA
  38. DOCUSATE SODIUM. [Concomitant]
     Active Substance: DOCUSATE SODIUM
     Dosage: UNK
     Dates: start: 20190314
  39. FLUTICASONE PROPIONATE W/SALMETEROL [Concomitant]
     Active Substance: FLUTICASONE PROPIONATE\SALMETEROL XINAFOATE
  40. TORADOL [Concomitant]
     Active Substance: KETOROLAC TROMETHAMINE
     Dosage: UNK
     Dates: start: 20191115
  41. NYSTATIN. [Concomitant]
     Active Substance: NYSTATIN
     Dosage: UNK
     Dates: start: 20200131
  42. SENNA [Concomitant]
     Active Substance: SENNA LEAF\SENNOSIDES\SENNOSIDES A AND B
     Dosage: UNK
     Dates: start: 20200131
  43. OPSUMIT [Suspect]
     Active Substance: MACITENTAN
     Indication: PULMONARY HYPERTENSION
     Dosage: 10 MG, QD
     Route: 048
  44. OPSUMIT [Suspect]
     Active Substance: MACITENTAN
     Dosage: UNK
     Route: 048
  45. REMODULIN [Suspect]
     Active Substance: TREPROSTINIL
     Indication: PRODUCT USED FOR UNKNOWN INDICATION
     Dosage: UNK
     Route: 058
  46. COMBIVENT [Concomitant]
     Active Substance: ALBUTEROL SULFATE\IPRATROPIUM BROMIDE
  47. POTASSIUM [Concomitant]
     Active Substance: POTASSIUM
  48. HYDREA [Concomitant]
     Active Substance: HYDROXYUREA
     Dosage: UNK
     Dates: start: 20180711
  49. OXYGEN. [Concomitant]
     Active Substance: OXYGEN
     Dosage: UNK
     Dates: start: 20180711
  50. AZITHROMYCIN ANHYDROUS. [Concomitant]
     Active Substance: AZITHROMYCIN ANHYDROUS
     Dosage: UNK
     Dates: start: 20190304
  51. HYDROMORPHONE [Concomitant]
     Active Substance: HYDROMORPHONE
  52. GENERLAC [Concomitant]
     Active Substance: LACTULOSE
  53. ROCEPHIN [Concomitant]
     Active Substance: CEFTRIAXONE SODIUM
     Dosage: UNK
     Route: 042
     Dates: start: 20191115
  54. TAMIFLU [Concomitant]
     Active Substance: OSELTAMIVIR PHOSPHATE
     Dosage: UNK
     Dates: start: 20200104
  55. REMODULIN [Suspect]
     Active Substance: TREPROSTINIL
     Dosage: UNK
     Route: 058
  56. FOLVITE [Concomitant]
     Active Substance: FOLIC ACID
     Dosage: UNK
     Dates: start: 20190314
  57. REGLAN [Concomitant]
     Active Substance: METOCLOPRAMIDE HYDROCHLORIDE
     Dosage: UNK
     Dates: start: 20190314
  58. DILTIAZEM. [Concomitant]
     Active Substance: DILTIAZEM
     Dosage: UNK
     Dates: start: 20200131
  59. ADEMPAS [Concomitant]
     Active Substance: RIOCIGUAT
  60. TYLENOL [Concomitant]
     Active Substance: ACETAMINOPHEN
     Dosage: UNK
     Route: 042
     Dates: start: 20190304
  61. DILAUDID [Concomitant]
     Active Substance: HYDROMORPHONE HYDROCHLORIDE
     Dosage: UNK
     Dates: start: 20180711, end: 20180717
  62. IPRATROPIUM/ALBUTEROL [Concomitant]
     Active Substance: ALBUTEROL\IPRATROPIUM

REACTIONS (44)
  - Hospitalisation [Unknown]
  - Dyspnoea [Recovered/Resolved]
  - Packed red blood cell transfusion [Recovered/Resolved]
  - Pain [Recovered/Resolved]
  - Headache [Unknown]
  - Nausea [Unknown]
  - Pneumonia [Not Recovered/Not Resolved]
  - Cough [Recovered/Resolved]
  - Muscle spasms [Unknown]
  - Weight decreased [Unknown]
  - Infusion site haemorrhage [Unknown]
  - Pain in jaw [Unknown]
  - Infusion site erythema [Unknown]
  - Somnolence [Unknown]
  - Platelet transfusion [Recovered/Resolved]
  - Pain in extremity [Recovered/Resolved]
  - Chest pain [Recovered/Resolved]
  - Respiratory failure [Recovered/Resolved]
  - Hypotension [Unknown]
  - Infusion [Unknown]
  - Platelet count decreased [Unknown]
  - Paraesthesia [Recovered/Resolved]
  - Rhinovirus infection [Recovered/Resolved with Sequelae]
  - Pyrexia [Recovered/Resolved]
  - Arthralgia [Unknown]
  - Red blood cell count decreased [Unknown]
  - Oedema peripheral [Not Recovered/Not Resolved]
  - Hypoxia [Unknown]
  - Abdominal pain [Unknown]
  - International normalised ratio increased [Unknown]
  - Decreased appetite [Unknown]
  - Influenza [Recovered/Resolved]
  - Dizziness exertional [Not Recovered/Not Resolved]
  - Swelling [Unknown]
  - Haemoglobin decreased [Unknown]
  - Vomiting [Recovered/Resolved with Sequelae]
  - Fatigue [Not Recovered/Not Resolved]
  - Infusion site pain [Unknown]
  - Malaise [Unknown]
  - Memory impairment [Unknown]
  - Sickle cell anaemia with crisis [Unknown]
  - Dizziness [Not Recovered/Not Resolved]
  - Pulmonary hypertension [Unknown]
  - Feeling abnormal [Not Recovered/Not Resolved]

NARRATIVE: CASE EVENT DATE: 20180525
